FAERS Safety Report 8530198-5 (Version None)
Quarter: 2012Q3

REPORT INFORMATION
  Report Type: 
  Country: None (occurrence: None)
  Receive Date: 20120711
  Receipt Date: 20120628
  Transmission Date: 20120928
  Serious: Yes (Hospitalization, Other)
  Sender: FDA-Public Use
  Company Number: 2012P1037477

PATIENT
  Age: 48 Year
  Sex: Female

DRUGS (18)
  1. FOLIC ACID [Concomitant]
  2. PANTOPROAZOLE [Concomitant]
  3. SODIUM CHLORIDE NASAL SPRAY [Concomitant]
  4. METOPROLOL SUCCINATE [Concomitant]
  5. METHYLPREDNISOLONE [Suspect]
     Indication: COMPLICATIONS OF TRANSPLANTED KIDNEY
     Dosage: QD; PO
     Route: 048
  6. UNSPECIFIED STEROID (NO PREF. NAME) [Suspect]
  7. SNYTHROID [Concomitant]
  8. ASCORBIC ACID [Concomitant]
  9. GABAPENTIN [Concomitant]
  10. CALCITRIOL [Concomitant]
  11. VITAMIN B COMPLEX CAP [Concomitant]
  12. MAGNESIUM OXIDE [Concomitant]
  13. ALLOPURINOL [Concomitant]
  14. NYSTATIN [Concomitant]
  15. LANTUS [Concomitant]
  16. OXYCODONE HCL [Concomitant]
  17. PAROXETINE [Concomitant]
  18. LORAZEPAM [Concomitant]

REACTIONS (19)
  - HAEMODIALYSIS [None]
  - NAUSEA [None]
  - VOMITING [None]
  - HYPOTENSION [None]
  - ABSCESS INTESTINAL [None]
  - PULMONARY EMBOLISM [None]
  - PERITONITIS [None]
  - ABDOMINAL PAIN [None]
  - FOREIGN BODY [None]
  - COELIAC ARTERY STENOSIS [None]
  - COMPLICATIONS OF TRANSPLANTED KIDNEY [None]
  - FUNGAL TEST POSITIVE [None]
  - DIARRHOEA [None]
  - SEPTIC SHOCK [None]
  - PERITONEAL HAEMORRHAGE [None]
  - ADRENAL INSUFFICIENCY [None]
  - BACTERIAL TEST POSITIVE [None]
  - RENAL CYST [None]
  - CYSTITIS [None]
